FAERS Safety Report 22396519 (Version 2)
Quarter: 2023Q2

REPORT INFORMATION
  Report Type: Report from Study
  Country: PH (occurrence: PH)
  Receive Date: 20230601
  Receipt Date: 20230622
  Transmission Date: 20230722
  Serious: Yes (Other)
  Sender: FDA-Public Use
  Company Number: PH-009507513-2210PHL010296

PATIENT
  Age: 47 Year
  Sex: Female

DRUGS (14)
  1. PEMBROLIZUMAB [Suspect]
     Active Substance: PEMBROLIZUMAB
     Indication: Product used for unknown indication
     Dosage: 200 MILLIGRAM, EVERY 3 WEEKS, 1ST CYCLE
     Route: 042
     Dates: start: 20220715, end: 20220715
  2. PEMBROLIZUMAB [Suspect]
     Active Substance: PEMBROLIZUMAB
     Dosage: 200 MILLIGRAM, EVERY 3 WEEKS, 2ND CYCLE
     Route: 042
     Dates: start: 20220804, end: 20220804
  3. PEMBROLIZUMAB [Suspect]
     Active Substance: PEMBROLIZUMAB
     Dosage: 200 MILLIGRAM, EVERY 3 WEEKS, 3RD CYCLE
     Route: 042
     Dates: start: 20220825, end: 20220825
  4. PEMBROLIZUMAB [Suspect]
     Active Substance: PEMBROLIZUMAB
     Dosage: 200 MILLIGRAM, EVERY 3 WEEKS, 4TH CYCLE
     Route: 042
     Dates: start: 20220915, end: 20220915
  5. PEMBROLIZUMAB [Suspect]
     Active Substance: PEMBROLIZUMAB
     Dosage: 200 MILLIGRAM, EVERY 3 WEEKS, 5TH CYCLE
     Route: 042
     Dates: start: 20221006, end: 20221006
  6. PEMBROLIZUMAB [Suspect]
     Active Substance: PEMBROLIZUMAB
     Dosage: 200 MILLIGRAM, EVERY 3 WEEKS, 6TH CYCLE
     Route: 042
     Dates: start: 20221027, end: 20221027
  7. PEMBROLIZUMAB [Suspect]
     Active Substance: PEMBROLIZUMAB
     Dosage: 200 MILLIGRAM, EVERY 3 WEEKS. 7TH CYCLE
     Route: 042
     Dates: start: 20221122, end: 20221122
  8. PEMBROLIZUMAB [Suspect]
     Active Substance: PEMBROLIZUMAB
     Dosage: 200 MILLIGRAM, EVERY 3 WEEKS,8TH CYCLE
     Route: 042
     Dates: start: 20221222, end: 20221222
  9. PEMBROLIZUMAB [Suspect]
     Active Substance: PEMBROLIZUMAB
     Dosage: 200 MILLIGRAM, EVERY 3 WEEKS, 9TH CYCLE
     Route: 042
     Dates: start: 20230112, end: 20230112
  10. PEMBROLIZUMAB [Suspect]
     Active Substance: PEMBROLIZUMAB
     Dosage: 200 MILLIGRAM, EVERY 3 WEEKS, 10TH CYCLE
     Route: 042
     Dates: start: 20230202, end: 20230202
  11. PEMBROLIZUMAB [Suspect]
     Active Substance: PEMBROLIZUMAB
     Dosage: 200 MILLIGRAM, EVERY 3 WEEKS, 11TH CYCLE
     Route: 042
     Dates: start: 20230224, end: 20230224
  12. PEMBROLIZUMAB [Suspect]
     Active Substance: PEMBROLIZUMAB
     Dosage: 200 MILLIGRAM, EVERY 3 WEEKS, 12TH CYCLE
     Route: 042
     Dates: start: 20230328, end: 20230328
  13. PEMBROLIZUMAB [Suspect]
     Active Substance: PEMBROLIZUMAB
     Dosage: 200 MILLIGRAM, EVERY 3 WEEKS, 13TH CYCLE
     Route: 042
     Dates: start: 20230518, end: 20230518
  14. PEMBROLIZUMAB [Suspect]
     Active Substance: PEMBROLIZUMAB
     Dosage: 200 MILLIGRAM, EVERY 3 WEEKS, 14TH CYCLE
     Route: 042
     Dates: start: 20230518, end: 20230518

REACTIONS (14)
  - Nephrostomy [Unknown]
  - Tumour obstruction [Unknown]
  - Malignant neoplasm progression [Unknown]
  - Haemoglobin decreased [Unknown]
  - Rectal obstruction [Unknown]
  - Cough [Unknown]
  - Asthenia [Unknown]
  - Tumour pain [Unknown]
  - Constipation [Unknown]
  - Inappropriate schedule of product administration [Unknown]
  - Inappropriate schedule of product administration [Unknown]
  - Inappropriate schedule of product administration [Unknown]
  - Inappropriate schedule of product administration [Unknown]
  - Inappropriate schedule of product administration [Unknown]

NARRATIVE: CASE EVENT DATE: 20220101
